FAERS Safety Report 25229721 (Version 1)
Quarter: 2025Q2

REPORT INFORMATION
  Report Type: Spontaneous
  Country: IT (occurrence: IT)
  Receive Date: 20250423
  Receipt Date: 20250423
  Transmission Date: 20250716
  Serious: Yes (Death, Hospitalization)
  Sender: ACCORD
  Company Number: None

PATIENT
  Age: 59 Year
  Sex: Female
  Weight: 78 kg

DRUGS (17)
  1. CARBOPLATIN [Suspect]
     Active Substance: CARBOPLATIN
     Indication: Small cell lung cancer
     Dates: start: 20250127, end: 20250127
  2. ETOPOSIDE [Suspect]
     Active Substance: ETOPOSIDE
     Indication: Small cell lung cancer
     Dosage: 181 MG DAYS 1, 2, 3 OF A 21-DAY CYCLE (TOTAL PER CYCLE: 544.02 MG)
     Dates: start: 20250127, end: 20250129
  3. ATEZOLIZUMAB [Suspect]
     Active Substance: ATEZOLIZUMAB
     Indication: Small cell lung cancer
     Dates: start: 20250127, end: 20250127
  4. ESOMEPRAZOLE [Concomitant]
     Active Substance: ESOMEPRAZOLE
     Dosage: ESOMEPRAZOLO 40 MG 1 CPR/DIE
  5. MEMANTINE [Concomitant]
     Active Substance: MEMANTINE
     Dosage: MEMANTINE 20 MG 1/2 TABLET/DAY
  6. LEVACECARNINE HYDROCHLORIDE [Concomitant]
     Active Substance: LEVACECARNINE HYDROCHLORIDE
     Dosage: 1 CAPSULE X 2 / DAY
  7. ACETYLCYSTEINE [Concomitant]
     Active Substance: ACETYLCYSTEINE
     Dosage: ACETYLCYSTEINE 1 TABLET X 2 / DAY
  8. PREDNISONE [Concomitant]
     Active Substance: PREDNISONE
     Dosage: DELTACORTENE 25 MG 1/2 TABLET PER DAY
  9. ESTAZOLAM [Concomitant]
     Active Substance: ESTAZOLAM
     Dosage: ESILGAN 2 MG 1 TABLET/DAY
  10. FOSTER [Concomitant]
     Active Substance: BECLOMETHASONE\FORMOTEROL
     Dosage: 200 MCG 2 INHALATIONS IN THE MORNING AND EVENING + 1 INHALATION IN THE AFTERNOON
  11. LYRICA [Concomitant]
     Active Substance: PREGABALIN
     Dosage: LYRICA 150 MG IN THE MORNING AND 150 MG IN THE EVENING
  12. MONTELUKAST [Concomitant]
     Active Substance: MONTELUKAST
     Dosage: MONTELUKAST 10 MG 1 TABLET DAILY AT 8:00 HR
  13. QUETIAPINE [Concomitant]
     Active Substance: QUETIAPINE
     Dosage: QUETIAPINE 25 MG 1 TABLET/DAY
  14. SPIRIVA [Concomitant]
     Active Substance: TIOTROPIUM BROMIDE MONOHYDRATE
     Dosage: 2 INHALATIONS IN THE AFTERNOON
  15. VENLAFAXINE [Concomitant]
     Active Substance: VENLAFAXINE HYDROCHLORIDE
     Dosage: VENLAFAXINE 75 MG 8:00 HR + VENLAFAXINE 37.5 MG 12:00 HR
  16. FOSTER [Concomitant]
     Active Substance: BECLOMETHASONE\FORMOTEROL
     Dosage: 200 MCG 2 INHALATIONS IN THE MORNING AND EVENING + 1 INHALATION IN THE AFTERNOON
  17. VENLAFAXINE [Concomitant]
     Active Substance: VENLAFAXINE HYDROCHLORIDE
     Dosage: VENLAFAXINE 75 MG 8:00 HR + VENLAFAXINE 37.5 MG 12:00 HR

REACTIONS (2)
  - Leukopenia [Fatal]
  - Thrombocytopenia [Fatal]

NARRATIVE: CASE EVENT DATE: 20250206
